FAERS Safety Report 10012973 (Version 1)
Quarter: 2014Q1

REPORT INFORMATION
  Report Type: Report from Study
  Country: GB (occurrence: GB)
  Receive Date: 20140314
  Receipt Date: 20140314
  Transmission Date: 20141002
  Serious: Yes (Hospitalization)
  Sender: FDA-Public Use
  Company Number: GB-ABBVIE-14P-167-1209502-00

PATIENT
  Age: 31 Year
  Sex: Male
  Weight: 106 kg

DRUGS (1)
  1. HUMIRA [Suspect]
     Indication: PSORIASIS
     Route: 058
     Dates: start: 20131113, end: 20140115

REACTIONS (2)
  - Pneumothorax spontaneous [Recovered/Resolved]
  - Dyspnoea [Recovered/Resolved]
